FAERS Safety Report 13599071 (Version 1)
Quarter: 2017Q2

REPORT INFORMATION
  Report Type: Spontaneous
  Country: US (occurrence: US)
  Receive Date: 20170531
  Receipt Date: 20170531
  Transmission Date: 20170830
  Serious: Yes (Other)
  Sender: FDA-Public Use
  Company Number: US-PFIZER INC-2017233622

PATIENT
  Age: 84 Year
  Sex: Male

DRUGS (14)
  1. RIFABUTIN. [Suspect]
     Active Substance: RIFABUTIN
     Indication: PLEURAL EFFUSION
     Dosage: UNK
  2. ETHAMBUTOL [Suspect]
     Active Substance: ETHAMBUTOL HYDROCHLORIDE
     Indication: PLEURAL EFFUSION
     Dosage: UNK
  3. ETHAMBUTOL [Suspect]
     Active Substance: ETHAMBUTOL HYDROCHLORIDE
     Indication: ASBESTOSIS
  4. ISONIAZID. [Suspect]
     Active Substance: ISONIAZID
     Indication: PLEURAL EFFUSION
     Dosage: UNK
  5. ISONIAZID. [Suspect]
     Active Substance: ISONIAZID
     Indication: ASBESTOSIS
  6. METOPROLOL. [Concomitant]
     Active Substance: METOPROLOL
     Dosage: UNK
  7. ISONIAZID. [Suspect]
     Active Substance: ISONIAZID
     Indication: TUBERCULOSIS
  8. LISINOPRIL. [Concomitant]
     Active Substance: LISINOPRIL
     Dosage: UNK
  9. ETHAMBUTOL [Suspect]
     Active Substance: ETHAMBUTOL HYDROCHLORIDE
     Indication: TUBERCULOSIS
  10. GLIPIZIDE. [Concomitant]
     Active Substance: GLIPIZIDE
     Dosage: UNK
  11. RIFABUTIN. [Suspect]
     Active Substance: RIFABUTIN
     Indication: TUBERCULOSIS
  12. WARFARIN [Concomitant]
     Active Substance: WARFARIN
     Dosage: UNK
  13. SIMVASTATIN. [Concomitant]
     Active Substance: SIMVASTATIN
     Dosage: UNK
  14. RIFABUTIN. [Suspect]
     Active Substance: RIFABUTIN
     Indication: ASBESTOSIS

REACTIONS (1)
  - Hepatotoxicity [Unknown]
